FAERS Safety Report 4695546-5 (Version None)
Quarter: 2005Q2

REPORT INFORMATION
  Report Type: 
  Country: None (occurrence: None)
  Receive Date: 20050608
  Receipt Date: 20050214
  Transmission Date: 20051028
  Serious: Yes (Other)
  Sender: FDA-Public Use
  Company Number: A03200500005

PATIENT
  Age: 82 Year
  Sex: Male
  Weight: 87.5442 kg

DRUGS (4)
  1. ELOXATIN [Suspect]
     Indication: RECTAL CANCER
     Dosage: 200 MG OTHER - INTRAVENOUS NOS
     Route: 042
     Dates: start: 20041227, end: 20041227
  2. WARFARIN SODIUM [Concomitant]
  3. METOPROLOL TARTRATE [Concomitant]
  4. AMLODIPINE BESYLATE [Concomitant]

REACTIONS (4)
  - INJECTION SITE EXTRAVASATION [None]
  - INJECTION SITE NECROSIS [None]
  - INJECTION SITE PAIN [None]
  - INJECTION SITE SWELLING [None]
